FAERS Safety Report 19087319 (Version 1)
Quarter: 2021Q2

REPORT INFORMATION
  Report Type: Spontaneous
  Country: US (occurrence: US)
  Receive Date: 20210402
  Receipt Date: 20210402
  Transmission Date: 20210717
  Serious: No
  Sender: FDA-Public Use
  Company Number: US-TEVA-2021-US-1896293

PATIENT
  Age: 64 Year
  Sex: Male

DRUGS (1)
  1. LORAZEPAM TEVA [Suspect]
     Active Substance: LORAZEPAM
     Dosage: 3 MILLIGRAM DAILY;
     Route: 065

REACTIONS (4)
  - Anxiety [Unknown]
  - Product substitution issue [Unknown]
  - Abdominal discomfort [Unknown]
  - Product odour abnormal [Unknown]
